FAERS Safety Report 18053252 (Version 1)
Quarter: 2020Q3

REPORT INFORMATION
  Report Type: Spontaneous
  Country: US (occurrence: US)
  Receive Date: 20200721
  Receipt Date: 20200721
  Transmission Date: 20201103
  Serious: Yes (Hospitalization)
  Sender: FDA-Public Use
  Company Number: None

PATIENT
  Age: 34 Year
  Sex: Female

DRUGS (2)
  1. ONDANSETRON HYDROCHLORIDE. [Suspect]
     Active Substance: ONDANSETRON HYDROCHLORIDE
     Indication: BREAST CANCER FEMALE
     Dosage: ?          OTHER DOSE:4MG/2ML;OTHER FREQUENCY:EVERY21DAYS ;?
     Route: 042
  2. INJECTAFER [Suspect]
     Active Substance: FERRIC CARBOXYMALTOSE
     Indication: BREAST CANCER FEMALE
     Dosage: ?          OTHER DOSE:750MG/15ML;?DOSAGE: 2 DOSES (SEPARATED BY AT LEAST 7 DAYS)
     Route: 042

REACTIONS (1)
  - Infection [None]

NARRATIVE: CASE EVENT DATE: 20200618
